FAERS Safety Report 4949578-X (Version None)
Quarter: 2006Q1

REPORT INFORMATION
  Report Type: 
  Country: None (occurrence: None)
  Receive Date: 20060316
  Receipt Date: 20060307
  Transmission Date: 20060701
  Serious: Yes (Hospitalization, Other)
  Sender: FDA-Public Use
  Company Number: HQWYE125927OCT04

PATIENT
  Age: 80 Year
  Sex: Male
  Weight: 66 kg

DRUGS (4)
  1. MYLOTARG [Suspect]
     Indication: ACUTE MYELOID LEUKAEMIA
     Dosage: SEE IMAGE
     Route: 042
     Dates: start: 20041019, end: 20041019
  2. MYLOTARG [Suspect]
     Indication: ACUTE MYELOID LEUKAEMIA
     Dosage: SEE IMAGE
     Route: 042
     Dates: start: 20041102, end: 20041102
  3. ALBUTEROL [Concomitant]
  4. LASIX [Concomitant]

REACTIONS (6)
  - ARTHRALGIA [None]
  - FALL [None]
  - FEBRILE NEUTROPENIA [None]
  - INFUSION RELATED REACTION [None]
  - PAIN [None]
  - PNEUMONIA [None]
